FAERS Safety Report 9057981 (Version 2)
Quarter: 2013Q3

REPORT INFORMATION
  Report Type: Spontaneous
  Country: CA (occurrence: CA)
  Receive Date: 20130211
  Receipt Date: 20130722
  Transmission Date: 20140515
  Serious: Yes (Life-Threatening, Hospitalization, Other)
  Sender: FDA-Public Use
  Company Number: CA-AMGEN-CANSP2013007095

PATIENT
  Age: 80 Year
  Sex: Male

DRUGS (2)
  1. ENBREL [Suspect]
     Indication: PSORIASIS
     Dosage: 50 MG, QWK
     Route: 065
     Dates: start: 20100601
  2. CLOBAZAM [Concomitant]
     Dosage: UNK

REACTIONS (6)
  - Pancreatic disorder [Recovered/Resolved]
  - Renal disorder [Recovering/Resolving]
  - Gallbladder disorder [Recovering/Resolving]
  - Jaundice [Recovering/Resolving]
  - Weight decreased [Recovering/Resolving]
  - Post procedural infection [Recovering/Resolving]
